FAERS Safety Report 9465580 (Version 1)
Quarter: 2013Q3

REPORT INFORMATION
  Report Type: Spontaneous
  Country: DE (occurrence: DE)
  Receive Date: 20130820
  Receipt Date: 20130820
  Transmission Date: 20140515
  Serious: Yes (Hospitalization, Other)
  Sender: FDA-Public Use
  Company Number: DE-JNJFOC-20130802577

PATIENT
  Age: 1 Day
  Sex: Female
  Weight: 1.9 kg

DRUGS (4)
  1. DOXORUBICIN [Suspect]
     Indication: HODGKIN^S DISEASE
     Route: 064
     Dates: start: 20080910, end: 20080929
  2. BLEOMYCIN [Suspect]
     Indication: HODGKIN^S DISEASE
     Route: 064
     Dates: start: 20080910, end: 20080929
  3. VINBLASTINE [Suspect]
     Indication: HODGKIN^S DISEASE
     Route: 064
     Dates: start: 20080910, end: 20080929
  4. DACARBAZINE [Suspect]
     Indication: HODGKIN^S DISEASE
     Route: 064
     Dates: start: 20080910, end: 20080929

REACTIONS (6)
  - Neonatal respiratory distress syndrome [Recovered/Resolved]
  - Neonatal hypotension [Recovered/Resolved]
  - Sinus arrest [Recovered/Resolved]
  - Anaemia neonatal [Recovered/Resolved]
  - Leukopenia neonatal [Recovered/Resolved]
  - Foetal exposure during pregnancy [Recovered/Resolved]
